FAERS Safety Report 6039284-5 (Version None)
Quarter: 2009Q1

REPORT INFORMATION
  Report Type: 
  Country: None (occurrence: None)
  Receive Date: 20090115
  Receipt Date: 20090113
  Transmission Date: 20090719
  Serious: Yes (Death, Other)
  Sender: FDA-Public Use
  Company Number: PHHY2009CA01225

PATIENT
  Sex: Female

DRUGS (3)
  1. CLOZARIL [Suspect]
     Indication: SCHIZOPHRENIA
     Dosage: UNK
     Dates: start: 20050512, end: 20080109
  2. ATENOLOL [Concomitant]
     Dosage: 50 MG
  3. LOXAPINE [Concomitant]
     Dosage: 20 MG

REACTIONS (4)
  - ARRHYTHMIA [None]
  - BLOOD GLUCOSE INCREASED [None]
  - FALL [None]
  - TACHYCARDIA [None]
